FAERS Safety Report 7764193-0 (Version None)
Quarter: 2011Q3

REPORT INFORMATION
  Report Type: 
  Country: None (occurrence: None)
  Receive Date: 20110921
  Receipt Date: 20110912
  Transmission Date: 20111222
  Serious: Yes (Other)
  Sender: FDA-Public Use
  Company Number: US-US-EMD SERONO, INC.-7017240

PATIENT
  Sex: Female
  Weight: 82 kg

DRUGS (9)
  1. NEURONTIN [Concomitant]
     Indication: HYPOAESTHESIA
  2. NEURONTIN [Concomitant]
     Indication: PARAESTHESIA
  3. ASPIRIN [Concomitant]
  4. NAPROXEN (ALEVE) [Concomitant]
     Indication: PREMEDICATION
  5. MULTI-VITAMIN [Concomitant]
  6. LEXAPRO [Concomitant]
     Indication: DEPRESSION
  7. ADVIL LIQUI-GELS [Concomitant]
     Indication: PREMEDICATION
  8. REBIF [Suspect]
     Indication: MULTIPLE SCLEROSIS
     Route: 058
     Dates: start: 20090310
  9. PROVIGIL [Concomitant]
     Indication: FATIGUE

REACTIONS (15)
  - SCARLET FEVER [None]
  - HEPATIC STEATOSIS [None]
  - SINUSITIS [None]
  - ADRENAL NEOPLASM [None]
  - OVARIAN CYST [None]
  - EAR INFECTION [None]
  - INJECTION SITE RASH [None]
  - BLOOD GLUCOSE INCREASED [None]
  - PARAESTHESIA [None]
  - INJECTION SITE ERYTHEMA [None]
  - GOITRE [None]
  - INJECTION SITE HAEMATOMA [None]
  - MYALGIA [None]
  - VOMITING [None]
  - BLOOD CHOLESTEROL INCREASED [None]
